FAERS Safety Report 13958225 (Version 1)
Quarter: 2017Q3

REPORT INFORMATION
  Report Type: Spontaneous
  Country: US (occurrence: US)
  Receive Date: 20170912
  Receipt Date: 20170912
  Transmission Date: 20171128
  Serious: Yes (Other)
  Sender: FDA-Public Use
  Company Number: US-APOTEX-2017AP017764

PATIENT
  Age: 3 Year
  Sex: Male

DRUGS (1)
  1. FLECAINIDE ACETATE. [Suspect]
     Active Substance: FLECAINIDE ACETATE
     Indication: SUPRAVENTRICULAR TACHYCARDIA
     Dosage: GIVING A TENFOLD OVERDOSE OF HIS PRESCRIBED FLECAINIDE
     Route: 065

REACTIONS (5)
  - Toxicity to various agents [Recovered/Resolved]
  - Ventricular tachycardia [Recovered/Resolved]
  - Tachyarrhythmia [Recovered/Resolved]
  - Syncope [Recovered/Resolved]
  - Accidental overdose [Recovered/Resolved]
